FAERS Safety Report 6040751-9 (Version None)
Quarter: 2009Q1

REPORT INFORMATION
  Report Type: 
  Country: None (occurrence: None)
  Receive Date: 20090116
  Receipt Date: 20080520
  Transmission Date: 20090719
  Serious: No
  Sender: FDA-Public Use
  Company Number: US-BRISTOL-MYERS SQUIBB COMPANY-14197453

PATIENT
  Age: 16 Year
  Sex: Male

DRUGS (4)
  1. ABILIFY [Suspect]
     Indication: AUTISM
  2. ABILIFY [Suspect]
     Indication: SCHIZOPHRENIA
  3. FOCALIN [Concomitant]
     Dosage: FOCALIN XR
  4. THYROID TAB [Concomitant]

REACTIONS (2)
  - TIC [None]
  - WEIGHT INCREASED [None]
